FAERS Safety Report 8961006 (Version 1)
Quarter: 2012Q4

REPORT INFORMATION
  Report Type: 
  Country: JP (occurrence: JP)
  Receive Date: 20121212
  Receipt Date: 20121212
  Transmission Date: 20130627
  Serious: Yes (Death, Hospitalization)
  Sender: FDA-Public Use
  Company Number: JP-MYLANLABS-2012S1024941

PATIENT
  Age: 9 Year
  Sex: Male
  Weight: 40 kg

DRUGS (8)
  1. PREDNISOLONE [Suspect]
     Indication: PRECURSOR B-LYMPHOBLASTIC LYMPHOMA
     Dosage: 60 mg/m2 daily for 5 weeks
     Route: 065
  2. VINCRISTINE [Suspect]
     Indication: PRECURSOR B-LYMPHOBLASTIC LYMPHOMA
     Dosage: 1.5 mg/m2 on days 8, 15, 22 and 29
     Route: 065
  3. CYCLOPHOSPHAMIDE [Suspect]
     Indication: PRECURSOR B-LYMPHOBLASTIC LYMPHOMA
     Dosage: 1.0 g/m2 on day 8
     Route: 065
  4. DAUNORUBICIN [Suspect]
     Indication: PRECURSOR B-LYMPHOBLASTIC LYMPHOMA
     Dosage: 40 mg/m2 on days 8, 15 and 22
     Route: 065
  5. ASPARAGINASE [Suspect]
     Indication: PRECURSOR B-LYMPHOBLASTIC LYMPHOMA
     Dosage: 6000 U/m2 on days 9, 11, 13, 16, 18, 20, 23, 25 and 27
     Route: 065
  6. METHOTREXATE [Suspect]
     Indication: PRECURSOR B-LYMPHOBLASTIC LYMPHOMA
     Dosage: 12.5mg on days 1, 15 and 29
     Route: 037
  7. CYTARABINE [Suspect]
     Indication: PRECURSOR B-LYMPHOBLASTIC LYMPHOMA
     Dosage: 25mg on days 1, 15 and 29
     Route: 037
  8. HYDROCORTISONE [Suspect]
     Indication: PRECURSOR B-LYMPHOBLASTIC LYMPHOMA
     Dosage: 25mg on days 1, 15 and 29
     Route: 037

REACTIONS (3)
  - Venoocclusive liver disease [Not Recovered/Not Resolved]
  - Neuropathy peripheral [Unknown]
  - Haemorrhage intracranial [Fatal]
